FAERS Safety Report 12835697 (Version 2)
Quarter: 2016Q4

REPORT INFORMATION
  Report Type: Report from Study
  Country: US (occurrence: US)
  Receive Date: 20161011
  Receipt Date: 20161108
  Transmission Date: 20170207
  Serious: Yes (Life-Threatening)
  Sender: FDA-Public Use
  Company Number: PHEH2016US025958

PATIENT
  Sex: Male
  Weight: 78.46 kg

DRUGS (1)
  1. GLEEVEC [Suspect]
     Active Substance: IMATINIB MESYLATE
     Indication: GASTROINTESTINAL STROMAL TUMOUR
     Dosage: 400 G, QD
     Route: 048
     Dates: start: 20161011

REACTIONS (2)
  - General physical health deterioration [Unknown]
  - Feeling abnormal [Unknown]
